FAERS Safety Report 9691106 (Version 3)
Quarter: 2014Q1

REPORT INFORMATION
  Report Type: Spontaneous
  Country: AT (occurrence: AT)
  Receive Date: 20131115
  Receipt Date: 20140107
  Transmission Date: 20141002
  Serious: Yes (Other)
  Sender: FDA-Public Use
  Company Number: AT-ABBVIE-13P-009-1167245-00

PATIENT
  Age: 39 Year
  Sex: Male
  Weight: 85 kg

DRUGS (9)
  1. HUMIRA [Suspect]
     Indication: CROHN^S DISEASE
     Dosage: 160-80-40MG
     Route: 058
     Dates: start: 20130826, end: 20131209
  2. PENTASA [Suspect]
     Indication: PRODUCT USED FOR UNKNOWN INDICATION
     Dates: end: 20130930
  3. ENTOCORT [Suspect]
     Indication: PRODUCT USED FOR UNKNOWN INDICATION
     Dates: end: 20130920
  4. VIT. D, FOLIC ACID, VIT. B - COMPLEX [Suspect]
     Indication: PRODUCT USED FOR UNKNOWN INDICATION
  5. PANTOPRAZOL [Suspect]
     Indication: PRODUCT USED FOR UNKNOWN INDICATION
  6. OLEOVIT [Concomitant]
     Indication: PRODUCT USED FOR UNKNOWN INDICATION
  7. NEUROBION [Concomitant]
     Indication: PRODUCT USED FOR UNKNOWN INDICATION
  8. PANTOLOC [Concomitant]
     Indication: PRODUCT USED FOR UNKNOWN INDICATION
     Dosage: 1 AS REQUIRED
  9. MEXALEN [Concomitant]
     Indication: PRODUCT USED FOR UNKNOWN INDICATION
     Dosage: 1 AS REQUIRED

REACTIONS (2)
  - Haematochezia [Recovering/Resolving]
  - No therapeutic response [Unknown]
